FAERS Safety Report 7344795-6 (Version None)
Quarter: 2011Q1

REPORT INFORMATION
  Report Type: 
  Country: None (occurrence: None)
  Receive Date: 20110310
  Receipt Date: 20110307
  Transmission Date: 20110831
  Serious: Yes (Death, Other)
  Sender: FDA-Public Use
  Company Number: US-AMGEN-QUU435001

PATIENT
  Age: 67 Year
  Sex: Male
  Weight: 59.889 kg

DRUGS (9)
  1. GABAPENTIN [Concomitant]
     Dosage: 100 MG, QD
     Route: 048
     Dates: start: 20100604
  2. LANSOPRAZOLE [Concomitant]
     Dosage: 30 MG, QD
     Route: 048
     Dates: start: 20100604
  3. CORTICOSTEROID NOS [Concomitant]
     Dosage: UNK UNK, UNK
     Dates: start: 20100429
  4. CABERGOLINE [Concomitant]
     Dosage: .5 MG, 3 TIMES/WK
     Route: 048
     Dates: start: 20100427
  5. RED BLOOD CELLS [Concomitant]
     Dosage: UNK UNK, UNK
     Dates: start: 20100427
  6. NPLATE [Suspect]
     Indication: THROMBOCYTOPENIA
  7. PREDNISONE [Concomitant]
     Dosage: 20 MG, BID
     Route: 048
     Dates: start: 20100427
  8. NPLATE [Suspect]
     Indication: IDIOPATHIC THROMBOCYTOPENIC PURPURA
     Dosage: 130 A?G, UNK
     Route: 058
     Dates: start: 20100519, end: 20100614
  9. POTASSIUM CHLORIDE [Concomitant]
     Dosage: 8 MEQ, BID
     Route: 048
     Dates: start: 20100604

REACTIONS (2)
  - PROSTATE CANCER [None]
  - DRUG INEFFECTIVE [None]
